FAERS Safety Report 8538455-3 (Version None)
Quarter: 2012Q3

REPORT INFORMATION
  Report Type: 
  Country: None (occurrence: None)
  Receive Date: 20120712
  Receipt Date: 20120628
  Transmission Date: 20120928
  Serious: Yes (Disabling)
  Sender: FDA-Public Use
  Company Number: EU-2012-10178

PATIENT
  Age: 51 Year
  Sex: Male
  Weight: 110 kg

DRUGS (4)
  1. PLAVIX [Concomitant]
  2. ASPIRIN [Concomitant]
  3. PROCORALAN (LVABRADINE HYDROCHLORIDE) [Concomitant]
  4. PLETAL [Suspect]
     Indication: ARTERIAL OCCLUSIVE DISEASE
     Dosage: 50 MG MILLIGRAM(S), BID
     Dates: start: 20111201, end: 20120620

REACTIONS (5)
  - LEFT VENTRICULAR FAILURE [None]
  - SINUS TACHYCARDIA [None]
  - CARDIOMEGALY [None]
  - DEVICE OCCLUSION [None]
  - EJECTION FRACTION DECREASED [None]
